FAERS Safety Report 5279213-5 (Version None)
Quarter: 2007Q1

REPORT INFORMATION
  Report Type: 
  Country: None (occurrence: None)
  Receive Date: 20061213
  Receipt Date: 20060222
  Transmission Date: 20070707
  Serious: No
  Sender: FDA-Public Use
  Company Number: 2005UW19530

PATIENT
  Age: 47 Year
  Sex: Female
  Weight: 122.4712 kg

DRUGS (4)
  1. SEROQUEL [Suspect]
     Indication: PSYCHOTIC DISORDER
     Dosage: 500 MG HS PO
     Route: 048
     Dates: start: 20050208, end: 20051220
  2. SYMBYAX [Suspect]
     Indication: PSYCHOTIC DISORDER
     Dosage: 6/25MG
     Dates: start: 20040826, end: 20050208
  3. PROZAC [Concomitant]
  4. TRAZODONE HCL [Concomitant]

REACTIONS (3)
  - DIABETES MELLITUS [None]
  - HYPERLIPIDAEMIA [None]
  - HYPERTENSION [None]
